FAERS Safety Report 5189923-6 (Version None)
Quarter: 2006Q4

REPORT INFORMATION
  Report Type: 
  Country: None (occurrence: None)
  Receive Date: 20061215
  Receipt Date: 20061204
  Transmission Date: 20070319
  Serious: Yes (Other)
  Sender: FDA-Public Use
  Company Number: 2006150519

PATIENT
  Age: 76 Year
  Sex: Male

DRUGS (2)
  1. IDAMYCIN [Suspect]
     Dosage: 12 MG, INTRAVENOUS
     Route: 042
     Dates: start: 20061128, end: 20061128
  2. SUNRABIN (ENOCITABINE) [Concomitant]

REACTIONS (1)
  - INTERSTITIAL LUNG DISEASE [None]
